FAERS Safety Report 19102719 (Version 2)
Quarter: 2021Q3

REPORT INFORMATION
  Report Type: Spontaneous
  Country: CH (occurrence: CH)
  Receive Date: 20210407
  Receipt Date: 20210820
  Transmission Date: 20211014
  Serious: Yes (Other)
  Sender: FDA-Public Use
  Company Number: CH-009507513-2104CHE000420

PATIENT
  Age: 47 Year
  Sex: Male
  Weight: 98 kg

DRUGS (3)
  1. JANUMET [Suspect]
     Active Substance: METFORMIN HYDROCHLORIDE\SITAGLIPTIN PHOSPHATE
     Indication: TYPE 2 DIABETES MELLITUS
     Dosage: P?RINDOPRIL 10 MG /AMLODIPINE 10 MG
     Route: 048
     Dates: start: 20170405
  2. OZEMPIC [Suspect]
     Active Substance: SEMAGLUTIDE
     Indication: TYPE 2 DIABETES MELLITUS
     Dosage: 0.25 MILLIGRAM, QW
     Route: 058
     Dates: start: 20200128, end: 20201113
  3. COVERAM [Suspect]
     Active Substance: AMLODIPINE\PERINDOPRIL
     Indication: TYPE 2 DIABETES MELLITUS
     Dosage: PERINDOPRIL 10 MG + AMLODIPINE 10 MG
     Route: 048
     Dates: start: 20160923, end: 20201204

REACTIONS (3)
  - Abdominal pain [Recovered/Resolved]
  - Pancreatic enzymes increased [Recovered/Resolved]
  - Diarrhoea [Recovered/Resolved]

NARRATIVE: CASE EVENT DATE: 202005
